FAERS Safety Report 5858523 (Version 2)
Quarter: 2013Q3

REPORT INFORMATION
  Report Type: Report from Study
  Country: JP (occurrence: JP)
  Receive Date: 20050811
  Receipt Date: 20130717
  Transmission Date: 20140515
  Serious: Yes (Death, Other)
  Sender: FDA-Public Use
  Company Number: PHHO2004JP12006

PATIENT
  Age: 62 Year
  Sex: Male

DRUGS (2)
  1. CGP 57148B [Suspect]
     Indication: GASTROINTESTINAL STROMAL TUMOUR
     Dosage: 400 MG, QD
     Route: 048
     Dates: start: 20040408
  2. CGP 57148B [Suspect]
     Dosage: 600 MG, QD
     Route: 048

REACTIONS (4)
  - Peritoneal haemorrhage [Fatal]
  - Ileus [Fatal]
  - Pneumonia [Fatal]
  - Tumour haemorrhage [Unknown]
